FAERS Safety Report 14699580 (Version 2)
Quarter: 2019Q1

REPORT INFORMATION
  Report Type: Spontaneous
  Country: FR (occurrence: FR)
  Receive Date: 20180330
  Receipt Date: 20190225
  Transmission Date: 20190417
  Serious: Yes (Life-Threatening)
  Sender: FDA-Public Use
  Company Number: FR-MYLANLABS-2018M1018768

PATIENT
  Age: 68 Year
  Sex: Male
  Weight: 95 kg

DRUGS (5)
  1. MYLAN REMIFENTANIL [Suspect]
     Active Substance: REMIFENTANIL
     Indication: ANAESTHESIA
     Dosage: UNK
     Route: 042
     Dates: start: 20171024, end: 20171024
  2. KETAMINE RENAUDIN [Suspect]
     Active Substance: KETAMINE
     Indication: ANAESTHESIA
     Dosage: 20 MG, QD
     Route: 042
     Dates: start: 20171024, end: 20171024
  3. ROCURONIUM B BRAU [Suspect]
     Active Substance: ROCURONIUM BROMIDE
     Indication: ANAESTHESIA
     Dosage: 100 MG, QD
     Route: 042
     Dates: start: 20171024, end: 20171024
  4. PROPOFOL MYLAN [Suspect]
     Active Substance: PROPOFOL
     Indication: ANAESTHESIA
     Dosage: UNK
     Route: 042
     Dates: start: 20171024, end: 20171024
  5. MIDAZOLAM [Suspect]
     Active Substance: MIDAZOLAM HYDROCHLORIDE
     Indication: ANAESTHESIA
     Dosage: 2 MILLIGRAM, QD
     Route: 042
     Dates: start: 20171024, end: 20171024

REACTIONS (5)
  - Circulatory collapse [Recovered/Resolved]
  - Rash [Recovered/Resolved]
  - Anaphylactic shock [Recovered/Resolved]
  - Hypotension [Recovered/Resolved]
  - Bronchospasm [Recovered/Resolved]

NARRATIVE: CASE EVENT DATE: 20171024
